FAERS Safety Report 9723195 (Version 1)
Quarter: 2013Q4

REPORT INFORMATION
  Report Type: Spontaneous
  Country: CA (occurrence: CA)
  Receive Date: 20131202
  Receipt Date: 20131202
  Transmission Date: 20140711
  Serious: Yes (Other)
  Sender: FDA-Public Use
  Company Number: CA-B.I. PHARMACEUTICALS,INC./RIDGEFIELD-2013-BI-39275CN

PATIENT
  Sex: 0

DRUGS (2)
  1. XARELTO [Suspect]
  2. CHEMOTHERAPY [Concomitant]
     Indication: NEOPLASM MALIGNANT

REACTIONS (1)
  - Pulmonary embolism [Unknown]
